FAERS Safety Report 7570572-7 (Version None)
Quarter: 2011Q2

REPORT INFORMATION
  Report Type: 
  Country: None (occurrence: None)
  Receive Date: 20110622
  Receipt Date: 20110622
  Transmission Date: 20111010
  Serious: Yes (Hospitalization, Other)
  Sender: FDA-Public Use
  Company Number: None

PATIENT
  Sex: Male
  Weight: 76.4 kg

DRUGS (2)
  1. NIASPAN [Suspect]
     Indication: BLOOD CHOLESTEROL INCREASED
     Dosage: 500 MG ER NIASPAN SWALLOW WITH WATER
     Route: 048
     Dates: start: 20100324, end: 20100327
  2. NIASPAN [Suspect]
     Indication: BLOOD CHOLESTEROL INCREASED
     Dosage: 500 MG ER NIASPAN SWALLOW WITH WATER
     Route: 048
     Dates: start: 20100928

REACTIONS (1)
  - ASTHENIA [None]
